FAERS Safety Report 9799571 (Version 1)
Quarter: 2014Q1

REPORT INFORMATION
  Report Type: Spontaneous
  Country: US (occurrence: US)
  Receive Date: 20140106
  Receipt Date: 20140106
  Transmission Date: 20141002
  Serious: No
  Sender: FDA-Public Use
  Company Number: US-GILEAD-2010-0030276

PATIENT
  Age: 77 Year
  Sex: Female

DRUGS (14)
  1. LETAIRIS [Suspect]
     Indication: PULMONARY ARTERIAL HYPERTENSION
     Route: 048
     Dates: start: 20100515
  2. SPIRONOLACTONE [Concomitant]
  3. LASIX [Concomitant]
  4. REVATIO [Concomitant]
  5. CELEBREX [Concomitant]
  6. DILTIAZEM [Concomitant]
  7. HCTZ [Concomitant]
  8. LIPITOR [Concomitant]
  9. LEVOXYL [Concomitant]
  10. DIOVAN [Concomitant]
  11. WARFARIN [Concomitant]
  12. POTASSIUM [Concomitant]
  13. PREMARIN [Concomitant]
  14. MAG-OXIDE [Concomitant]

REACTIONS (1)
  - Joint swelling [Not Recovered/Not Resolved]
